FAERS Safety Report 13641564 (Version 1)
Quarter: 2017Q2

REPORT INFORMATION
  Report Type: Spontaneous
  Country: US (occurrence: US)
  Receive Date: 20170609
  Receipt Date: 20170609
  Transmission Date: 20170830
  Serious: No
  Sender: FDA-Public Use
  Company Number: None

PATIENT
  Age: 61 Year
  Sex: Male

DRUGS (1)
  1. INTRON A [Suspect]
     Active Substance: INTERFERON ALFA-2B

REACTIONS (5)
  - Feeling cold [None]
  - Dyspnoea [None]
  - Muscle tightness [None]
  - Throat tightness [None]
  - Tremor [None]

NARRATIVE: CASE EVENT DATE: 20170531
